FAERS Safety Report 9961480 (Version 2)
Quarter: 2014Q2

REPORT INFORMATION
  Report Type: Spontaneous
  Country: US (occurrence: US)
  Receive Date: 20140305
  Receipt Date: 20140423
  Transmission Date: 20141212
  Serious: Yes (Death, Hospitalization)
  Sender: FDA-Public Use
  Company Number: US-NOVOPROD-401452

PATIENT
  Age: 61 Year
  Sex: Male
  Weight: 78.01 kg

DRUGS (10)
  1. VICTOZA [Suspect]
     Indication: TYPE 2 DIABETES MELLITUS
     Dosage: 0.6 ML, QD
     Route: 058
     Dates: start: 20100917, end: 201009
  2. VICTOZA [Suspect]
     Dosage: 1.2 ML, QD
     Route: 058
     Dates: start: 201009, end: 20120711
  3. METFORMIN [Concomitant]
     Indication: TYPE 2 DIABETES MELLITUS
  4. LANTUS [Concomitant]
     Indication: TYPE 2 DIABETES MELLITUS
  5. GLIMEPIRIDE [Concomitant]
     Indication: TYPE 2 DIABETES MELLITUS
  6. ACTOS [Concomitant]
     Indication: TYPE 2 DIABETES MELLITUS
  7. CENTRUM SILVER                     /02363801/ [Concomitant]
  8. VITAMIN C WITH ROSE HIPS           /00008001/ [Concomitant]
     Dosage: UNK
     Dates: start: 1990, end: 20121202
  9. EQUATE PAIN RELIEVER [Concomitant]
     Indication: ARTHRITIS
     Dosage: UNK
     Dates: start: 2005, end: 20121202
  10. IRON [Concomitant]
     Dosage: UNK, TABLETS
     Dates: start: 20120711, end: 20121202

REACTIONS (6)
  - Pancreatic carcinoma metastatic [Fatal]
  - Gastrointestinal haemorrhage [Fatal]
  - Multi-organ failure [Fatal]
  - Sepsis [Fatal]
  - Hepatorenal syndrome [Fatal]
  - Hepatic cancer metastatic [Fatal]
